FAERS Safety Report 6946710-3 (Version None)
Quarter: 2010Q3

REPORT INFORMATION
  Report Type: 
  Country: None (occurrence: None)
  Receive Date: 20100827
  Receipt Date: 20090810
  Transmission Date: 20110219
  Serious: No
  Sender: FDA-Public Use
  Company Number: US-ABBOTT-09P-163-0590792-00

PATIENT
  Sex: Female
  Weight: 76.726 kg

DRUGS (1)
  1. NIASPAN [Suspect]
     Indication: BLOOD CHOLESTEROL INCREASED
     Dates: start: 20081001, end: 20090401

REACTIONS (2)
  - HYPERSENSITIVITY [None]
  - URTICARIA [None]
